FAERS Safety Report 7939294 (Version 4)
Quarter: 2012Q4

REPORT INFORMATION
  Report Type: Report from Study
  Country: US (occurrence: US)
  Receive Date: 20110510
  Receipt Date: 20121031
  Transmission Date: 20130627
  Serious: Yes (Other)
  Sender: FDA-Public Use
  Company Number: US-ABBOTT-11P-163-0723685-00

PATIENT
  Age: 58 None
  Sex: Male
  Weight: 93.07 kg

DRUGS (9)
  1. HUMIRA 40 MG/0.8 ML PEN [Suspect]
     Indication: PSORIATIC ARTHROPATHY
     Dates: start: 2008, end: 20110131
  2. HUMIRA 40 MG/0.8 ML PEN [Suspect]
     Indication: PSORIASIS
  3. CRESTOR [Concomitant]
     Indication: BLOOD CHOLESTEROL INCREASED
  4. RAMIPRIL [Concomitant]
     Indication: CARDIAC DISORDER
  5. RAMIPRIL [Concomitant]
     Indication: HYPERTENSION
  6. TRAMADOL [Concomitant]
     Indication: PAIN
  7. TRAMADOL [Concomitant]
     Indication: ARTHRALGIA
  8. AMBIEN [Concomitant]
     Indication: PRODUCT USED FOR UNKNOWN INDICATION
  9. VALTREX [Concomitant]
     Indication: PRODUCT USED FOR UNKNOWN INDICATION

REACTIONS (9)
  - Chronic lymphocytic leukaemia [Not Recovered/Not Resolved]
  - B-cell small lymphocytic lymphoma [Not Recovered/Not Resolved]
  - Splenomegaly [Not Recovered/Not Resolved]
  - White blood cell count increased [Not Recovered/Not Resolved]
  - Platelet count decreased [Not Recovered/Not Resolved]
  - Nasopharyngitis [Not Recovered/Not Resolved]
  - Bronchitis [Recovered/Resolved]
  - Fatigue [Recovered/Resolved]
  - Abdominal pain upper [Unknown]
